FAERS Safety Report 8248876 (Version 6)
Quarter: 2012Q4

REPORT INFORMATION
  Report Type: Report from Study
  Country: TR (occurrence: TR)
  Receive Date: 20111117
  Receipt Date: 20121218
  Transmission Date: 20130627
  Serious: Yes (Life-Threatening, Hospitalization)
  Sender: FDA-Public Use
  Company Number: PHHO2011TR019201

PATIENT
  Age: 18 Year
  Sex: Female
  Weight: 44.5 kg

DRUGS (11)
  1. ICL670A [Suspect]
     Indication: IRON OVERLOAD
     Dosage: 1000 mg/ day
     Dates: start: 20111104, end: 20111113
  2. ICL670A [Suspect]
     Dosage: 10 mg/kg/ day
     Dates: start: 20111124, end: 20111124
  3. DESFERAL [Suspect]
     Indication: IRON OVERLOAD
     Dosage: 1000 mg/ day
     Dates: start: 20111104, end: 20111113
  4. DESFERAL [Suspect]
     Dosage: UNK
     Dates: start: 20111129
  5. PARACETAMOL [Suspect]
     Indication: HEADACHE
     Dosage: UNK
     Dates: start: 20111111
  6. PARACETAMOL [Suspect]
     Indication: PYREXIA
  7. AVIL [Concomitant]
     Dosage: 1 mg/kg, UNK
  8. PREDNOL [Concomitant]
     Dosage: 0.5 mg/kg, UNK
  9. CEFTRIAXONE [Concomitant]
  10. CALCIUM [Concomitant]
     Dosage: 12 CC, UNK
     Route: 042
  11. ATERAX [Concomitant]
     Dosage: 25 mg/kg, UNK

REACTIONS (4)
  - Calcium deficiency [Not Recovered/Not Resolved]
  - Infection [Recovered/Resolved]
  - Asthenia [Recovered/Resolved]
  - Drug reaction with eosinophilia and systemic symptoms [Recovered/Resolved]
